FAERS Safety Report 4439898-X (Version None)
Quarter: 2004Q3

REPORT INFORMATION
  Report Type: 
  Country: None (occurrence: None)
  Receive Date: 20040831
  Receipt Date: 20040819
  Transmission Date: 20050211
  Serious: Yes (Other)
  Sender: FDA-Public Use
  Company Number: 208255

PATIENT
  Age: 12 Year
  Sex: Female
  Weight: 29.9 kg

DRUGS (6)
  1. NUTROPIN AQ [Suspect]
     Indication: HYPOPITUITARISM
     Dosage: 1.2 MG, 6/WEEK, SUBCUTANEOUS
     Route: 058
     Dates: start: 20030904
  2. DDAVP (DESMOPRESSIN ACETATE) [Concomitant]
  3. CORTEF [Concomitant]
  4. SYNTHROID [Concomitant]
  5. ZONEGRAN [Concomitant]
  6. CELEXA [Concomitant]

REACTIONS (1)
  - CONVULSION [None]
